FAERS Safety Report 13953508 (Version 1)
Quarter: 2017Q3

REPORT INFORMATION
  Report Type: Spontaneous
  Country: US (occurrence: None)
  Receive Date: 20170908
  Receipt Date: 20170908
  Transmission Date: 20171128
  Serious: Yes (Death, Hospitalization)
  Sender: FDA-Public Use
  Company Number: None

PATIENT
  Age: 3 Year
  Sex: Female
  Weight: 20.4 kg

DRUGS (5)
  1. METHOTREXATE. [Suspect]
     Active Substance: METHOTREXATE
     Dates: end: 20150604
  2. ONCASPAR [Suspect]
     Active Substance: PEGASPARGASE
     Dosage: 2000 UNIT
     Dates: end: 20150531
  3. DEXAMETHASONE. [Suspect]
     Active Substance: DEXAMETHASONE
     Dates: end: 20150620
  4. CYTARABINE. [Suspect]
     Active Substance: CYTARABINE
     Dates: end: 20150528
  5. VINCRISTINE SULFATE. [Suspect]
     Active Substance: VINCRISTINE SULFATE
     Dates: end: 20150618

REACTIONS (7)
  - Sepsis [None]
  - Ascites [None]
  - Cardiac arrest [None]
  - Abdominal pain [None]
  - Lactic acidosis [None]
  - Tachycardia [None]
  - Colitis [None]

NARRATIVE: CASE EVENT DATE: 20150606
